FAERS Safety Report 23925848 (Version 1)
Quarter: 2024Q2

REPORT INFORMATION
  Report Type: Spontaneous
  Country: US (occurrence: None)
  Receive Date: 20240531
  Receipt Date: 20240531
  Transmission Date: 20240716
  Serious: No
  Sender: FDA-Public Use
  Company Number: None

PATIENT
  Age: 88 Year
  Sex: Male

DRUGS (1)
  1. ODOMZO [Suspect]
     Active Substance: SONIDEGIB
     Indication: Basal cell carcinoma
     Dosage: FREQUENCY : AS DIRECTED;?
     Route: 048
     Dates: start: 202312

REACTIONS (8)
  - Nausea [None]
  - Vomiting [None]
  - Headache [None]
  - Asthenia [None]
  - Therapy cessation [None]
  - Muscle spasms [None]
  - Therapy change [None]
  - Drug ineffective [None]
